FAERS Safety Report 9813611 (Version 3)
Quarter: 2014Q1

REPORT INFORMATION
  Report Type: Spontaneous
  Country: DE (occurrence: DE)
  Receive Date: 20140113
  Receipt Date: 20140124
  Transmission Date: 20141002
  Serious: Yes (Other)
  Sender: FDA-Public Use
  Company Number: DE-ELI_LILLY_AND_COMPANY-DE201311003860

PATIENT
  Age: 54 Year
  Sex: Male
  Weight: 89 kg

DRUGS (17)
  1. ALIMTA [Suspect]
     Indication: LUNG ADENOCARCINOMA
     Dosage: 1080 MG, UNKNOWN
     Route: 042
     Dates: start: 20130627
  2. ALIMTA [Suspect]
     Dosage: 1080 MG, UNKNOWN
     Route: 042
     Dates: start: 20130718
  3. ALIMTA [Suspect]
     Dosage: 1080 MG, UNKNOWN
     Route: 042
     Dates: start: 20130808
  4. ALIMTA [Suspect]
     Dosage: 1080 MG, UNKNOWN
     Route: 042
     Dates: start: 20130905
  5. ALIMTA [Suspect]
     Dosage: 1080 MG, UNKNOWN
     Route: 042
     Dates: start: 20131001
  6. ALIMTA [Suspect]
     Dosage: 1080 MG, UNKNOWN
     Route: 042
     Dates: start: 20131105
  7. CISPLATIN [Concomitant]
     Indication: LUNG ADENOCARCINOMA
     Dosage: 162 MG, UNK
     Dates: start: 20130627
  8. CISPLATIN [Concomitant]
     Dosage: 162 MG, UNK
     Dates: start: 20130718
  9. CISPLATIN [Concomitant]
     Dosage: 162 MG, UNK
     Dates: start: 20130808
  10. CISPLATIN [Concomitant]
     Dosage: 162 MG, UNK
     Dates: start: 20130905
  11. DEXAMETHASONE [Concomitant]
     Indication: OEDEMA PERIPHERAL
     Dosage: 4 MG, QD
     Route: 048
     Dates: start: 20130514
  12. DEXAMETHASONE [Concomitant]
     Indication: METASTASES TO CENTRAL NERVOUS SYSTEM
     Dosage: 2 MG, QD
     Route: 048
  13. DEXAMETHASONE [Concomitant]
     Dosage: 0.5 MG, QD
     Route: 048
  14. PREDNISOLON                        /00016201/ [Concomitant]
  15. FOLIC ACID [Concomitant]
     Dosage: 0.4 MG, QD
     Dates: start: 20130620
  16. FOLIC ACID [Concomitant]
     Dosage: 0.5 MG, UNKNOWN
     Route: 048
     Dates: end: 20131215
  17. VITAMIN B12                        /00056201/ [Concomitant]
     Dosage: 1000 UG, UNK
     Route: 030
     Dates: start: 20130620

REACTIONS (7)
  - Epilepsy [Unknown]
  - Oedema peripheral [Unknown]
  - Oedema peripheral [Recovered/Resolved]
  - Erythema [Recovering/Resolving]
  - Oedema [Recovered/Resolved]
  - Weight increased [Recovering/Resolving]
  - Eyelid oedema [Recovering/Resolving]
